FAERS Safety Report 17804421 (Version 1)
Quarter: 2020Q2

REPORT INFORMATION
  Report Type: Spontaneous
  Country: NL (occurrence: NL)
  Receive Date: 20200519
  Receipt Date: 20200519
  Transmission Date: 20200714
  Serious: Yes (Other)
  Sender: FDA-Public Use
  Company Number: NVSC2020NL135030

PATIENT
  Age: 61 Year
  Sex: Male
  Weight: 97 kg

DRUGS (2)
  1. MOMETASONE [Suspect]
     Active Substance: MOMETASONE
     Indication: SEASONAL ALLERGY
     Dosage: 50MCG, A.N 2 PUF IN BEIDE NEUSGATEN, 2 SPRAY
     Route: 065
     Dates: start: 20200207, end: 20200226
  2. DESLORATADINE. [Concomitant]
     Active Substance: DESLORATADINE
     Indication: PRODUCT USED FOR UNKNOWN INDICATION
     Dosage: 5 MG
     Route: 065

REACTIONS (1)
  - Atrial fibrillation [Recovered/Resolved]

NARRATIVE: CASE EVENT DATE: 20200222
